FAERS Safety Report 16997008 (Version 1)
Quarter: 2019Q4

REPORT INFORMATION
  Report Type: Spontaneous
  Country: US (occurrence: US)
  Receive Date: 20190924
  Receipt Date: 20190924
  Transmission Date: 20200122
  Serious: Yes (Hospitalization)
  Sender: FDA-Public Use
  Company Number: None

PATIENT
  Age: 64 Year
  Sex: Female

DRUGS (1)
  1. TACROLIMUS, .05MG [Suspect]
     Active Substance: TACROLIMUS
     Route: 048
     Dates: start: 20190520, end: 20190923

REACTIONS (1)
  - Abdominal discomfort [None]
